FAERS Safety Report 6692166-8 (Version None)
Quarter: 2010Q2

REPORT INFORMATION
  Report Type: 
  Country: None (occurrence: None)
  Receive Date: 20100422
  Receipt Date: 20090730
  Transmission Date: 20101027
  Serious: No
  Sender: FDA-Public Use
  Company Number: US-ASTRAZENECA-2009UW06781

PATIENT
  Age: 70 Year
  Sex: Female

DRUGS (3)
  1. TOPROL-XL [Suspect]
     Indication: HYPERTENSION
     Route: 048
     Dates: start: 19980101
  2. LIPITOR [Concomitant]
     Indication: BLOOD CHOLESTEROL INCREASED
  3. LEVOTHROID [Concomitant]
     Indication: HYPOTHYROIDISM

REACTIONS (3)
  - CONDITION AGGRAVATED [None]
  - SLEEP DISORDER [None]
  - SLEEP TERROR [None]
